FAERS Safety Report 6000573-1 (Version None)
Quarter: 2008Q4

REPORT INFORMATION
  Report Type: 
  Country: None (occurrence: None)
  Receive Date: 20081215
  Receipt Date: 20081209
  Transmission Date: 20090506
  Serious: No
  Sender: FDA-Public Use
  Company Number: TW-AVENTIS-200811789GDDC

PATIENT
  Age: 26 Year
  Sex: Female

DRUGS (6)
  1. ARAVA [Suspect]
     Indication: RHEUMATOID ARTHRITIS
     Route: 048
     Dates: start: 20070501, end: 20080130
  2. STILNOX                            /00914901/ [Concomitant]
  3. SCANOL [Concomitant]
  4. PLAQUENIL                          /00072601/ [Concomitant]
  5. CELEBREX [Concomitant]
  6. IMOVANE [Concomitant]

REACTIONS (1)
  - DRUG EXPOSURE DURING PREGNANCY [None]
